FAERS Safety Report 16571203 (Version 2)
Quarter: 2019Q3

REPORT INFORMATION
  Report Type: Spontaneous
  Country: US (occurrence: US)
  Receive Date: 20190715
  Receipt Date: 20190806
  Transmission Date: 20191004
  Serious: Yes (Hospitalization)
  Sender: FDA-Public Use
  Company Number: US-PFIZER INC-2018537175

PATIENT
  Age: 69 Year
  Sex: Female
  Weight: 81.19 kg

DRUGS (2)
  1. LYRICA [Suspect]
     Active Substance: PREGABALIN
     Indication: FIBROMYALGIA
     Dosage: 75 MG, 3X/DAY (MORNING, AFTERNOON, AND AT BEDTIME)
     Route: 048
  2. LYRICA [Suspect]
     Active Substance: PREGABALIN
     Indication: NEURALGIA

REACTIONS (9)
  - Dehydration [Unknown]
  - Headache [Unknown]
  - Decreased appetite [Unknown]
  - Sinusitis [Recovered/Resolved]
  - Pyrexia [Recovering/Resolving]
  - Dyspnoea [Unknown]
  - Myalgia [Unknown]
  - Feeling abnormal [Unknown]
  - Malaise [Recovered/Resolved]

NARRATIVE: CASE EVENT DATE: 2019
